FAERS Safety Report 5971004-2 (Version None)
Quarter: 2008Q4

REPORT INFORMATION
  Report Type: 
  Country: None (occurrence: None)
  Receive Date: 20081128
  Receipt Date: 20081125
  Transmission Date: 20090506
  Serious: Yes (Death, Other)
  Sender: FDA-Public Use
  Company Number: PHBS2008US06427

PATIENT

DRUGS (6)
  1. CYCLOSPORINE [Suspect]
     Indication: STEM CELL TRANSPLANT
     Route: 042
  2. CYCLOSPORINE [Suspect]
     Route: 048
  3. CYCLOPHOSPHAMIDE [Concomitant]
     Indication: STEM CELL TRANSPLANT
     Dosage: 45 MG/KG
     Route: 042
  4. MESNA [Concomitant]
     Indication: PROPHYLAXIS
  5. CYTARABINE [Concomitant]
     Indication: STEM CELL TRANSPLANT
     Dosage: 3 G/M2 Q12H
     Route: 042
  6. IRRADIATION [Concomitant]
     Indication: STEM CELL TRANSPLANT

REACTIONS (2)
  - ENGRAFT FAILURE [None]
  - PNEUMONITIS [None]
